FAERS Safety Report 18092339 (Version 1)
Quarter: 2020Q3

REPORT INFORMATION
  Report Type: Spontaneous
  Country: US (occurrence: US)
  Receive Date: 20200730
  Receipt Date: 20200730
  Transmission Date: 20201103
  Serious: Yes (Other)
  Sender: FDA-Public Use
  Company Number: US-EMCURE PHARMACEUTICALS LTD-2020-EPL-000978

PATIENT
  Age: 40 Year
  Sex: Female

DRUGS (9)
  1. MELATONIN [Concomitant]
     Active Substance: MELATONIN
     Indication: INSOMNIA
     Dosage: 10 MILLIGRAM, PRN, NIGHTLY
  2. LURASIDONE [Suspect]
     Active Substance: LURASIDONE
     Indication: ANXIETY
     Dosage: 120 MILLIGRAM
  3. METHYLPHENIDATE. [Concomitant]
     Active Substance: METHYLPHENIDATE
     Indication: ATTENTION DEFICIT HYPERACTIVITY DISORDER
     Dosage: 20 MILLIGRAM, 2 DOSE PER 1 D
  4. PROPRANOLOL [Concomitant]
     Active Substance: PROPRANOLOL HYDROCHLORIDE
     Indication: ANXIETY
     Dosage: 10 MILLIGRAM, 2 DOSE PER 1 D, AS NEEDED
  5. DIPHENHYDRAMINE. [Concomitant]
     Active Substance: DIPHENHYDRAMINE
     Indication: PANIC ATTACK
     Dosage: LOW DOSE, HELPFUL IN EPISODES IN WHICH ONLY BREATHING WAS AFFECTED
  6. LURASIDONE [Suspect]
     Active Substance: LURASIDONE
     Indication: DEPRESSIVE SYMPTOM
     Dosage: 100 MILLIGRAM
  7. LORAZEPAM. [Concomitant]
     Active Substance: LORAZEPAM
     Indication: PANIC ATTACK
     Dosage: UNK, 14 PILLS EVERY 2 MONTHS
  8. LURASIDONE [Suspect]
     Active Substance: LURASIDONE
     Indication: BIPOLAR DISORDER
     Dosage: 80 MILLIGRAM, SINCE FOUR YEARS
  9. BUSPIRONE [Concomitant]
     Active Substance: BUSPIRONE HYDROCHLORIDE
     Indication: ANXIETY
     Dosage: 15 MILLIGRAM, 3 DOSE PER 1 D

REACTIONS (3)
  - Laryngospasm [Recovered/Resolved]
  - Dystonia [Recovered/Resolved]
  - Oculogyric crisis [Recovered/Resolved]
